FAERS Safety Report 6498348-2 (Version None)
Quarter: 2009Q4

REPORT INFORMATION
  Report Type: 
  Country: None (occurrence: None)
  Receive Date: 20091127
  Receipt Date: 20090226
  Transmission Date: 20100525
  Serious: Yes (Life-Threatening)
  Sender: FDA-Public Use
  Company Number: 284573

PATIENT
  Age: 66 Year
  Sex: Male
  Weight: 92.1 kg

DRUGS (10)
  1. NOVOLOG [Suspect]
     Indication: TYPE 2 DIABETES MELLITUS
     Dosage: 32 (12 AT AM, 8 AT NOON, 12 AT PM)IU, QD, SUBCUTANEOUS
     Route: 058
     Dates: start: 20080723
  2. LANTUS [Suspect]
     Indication: TYPE 2 DIABETES MELLITUS
     Dosage: 12 IU, ONCE QD, SUBCUTANEOUS
     Route: 058
     Dates: start: 20030417
  3. LOTREL /01289101/ (AMLODIPINE, BENAZEPRIL HYDROCHLORIDE) [Concomitant]
  4. ALPHAGAN /01341101/ (BRIMONIDINE) [Concomitant]
  5. COSOPT [Concomitant]
  6. FERROUS SULFATE TAB [Concomitant]
  7. LOVASTATIN [Concomitant]
  8. FELODIPINE [Concomitant]
  9. ALLOPURINOL [Concomitant]
  10. TOPROL-XL [Concomitant]

REACTIONS (1)
  - HYPOGLYCAEMIA [None]
